FAERS Safety Report 14981661 (Version 2)
Quarter: 2018Q3

REPORT INFORMATION
  Report Type: Spontaneous
  Country: US (occurrence: US)
  Receive Date: 20180607
  Receipt Date: 20180713
  Transmission Date: 20181010
  Serious: No
  Sender: FDA-Public Use
  Company Number: US-JNJFOC-20180531226

PATIENT
  Sex: Female
  Weight: 86.18 kg

DRUGS (5)
  1. STELARA [Suspect]
     Active Substance: USTEKINUMAB
     Indication: PSORIASIS
     Dosage: LOWEST DOSE
     Route: 058
     Dates: start: 2009
  2. BUPROPION. [Concomitant]
     Active Substance: BUPROPION
     Indication: POLYCYSTIC OVARIES
     Route: 065
  3. DROSPIRENONE [Concomitant]
     Active Substance: DROSPIRENONE
     Indication: CONTRACEPTION
     Route: 065
  4. METFORMIN [Concomitant]
     Active Substance: METFORMIN HYDROCHLORIDE
     Indication: POLYCYSTIC OVARIES
     Route: 065
  5. SPIRONOLACTONE. [Concomitant]
     Active Substance: SPIRONOLACTONE
     Indication: POLYCYSTIC OVARIES
     Route: 065

REACTIONS (1)
  - Papilloma viral infection [Not Recovered/Not Resolved]

NARRATIVE: CASE EVENT DATE: 2016
